FAERS Safety Report 24864010 (Version 1)
Quarter: 2025Q1

REPORT INFORMATION
  Report Type: Spontaneous
  Country: FR (occurrence: FR)
  Receive Date: 20250120
  Receipt Date: 20250120
  Transmission Date: 20250408
  Serious: Yes (Other)
  Sender: PURDUE
  Company Number: FR-PURDUE-USA-2025-0314722

PATIENT
  Age: 62 Year
  Sex: Male
  Weight: 53.6 kg

DRUGS (3)
  1. OXYCODONE HYDROCHLORIDE [Suspect]
     Active Substance: OXYCODONE HYDROCHLORIDE
     Indication: Cancer pain
     Dosage: 10 MILLIGRAM, DAILY
     Route: 048
     Dates: start: 20230324
  2. OXYCONTIN [Suspect]
     Active Substance: OXYCODONE HYDROCHLORIDE
     Indication: Cancer pain
     Dosage: 5 MILLIGRAM, DAILY
     Route: 048
     Dates: start: 20230324
  3. VALIUM [Suspect]
     Active Substance: DIAZEPAM
     Indication: Delirium tremens
     Dosage: 10 MILLIGRAM, DAILY
     Route: 042
     Dates: start: 20230326, end: 20230328

REACTIONS (1)
  - Coma [Recovered/Resolved]

NARRATIVE: CASE EVENT DATE: 20230328
